FAERS Safety Report 24574566 (Version 1)
Quarter: 2024Q4

REPORT INFORMATION
  Report Type: Spontaneous
  Country: NL (occurrence: NL)
  Receive Date: 20241104
  Receipt Date: 20241104
  Transmission Date: 20250115
  Serious: Yes (Life-Threatening)
  Sender: TEVA
  Company Number: None

PATIENT
  Age: 72 Year
  Sex: Female
  Weight: 60 kg

DRUGS (1)
  1. SPIRONOLACTONE [Suspect]
     Active Substance: SPIRONOLACTONE
     Indication: Cardiac failure
     Dosage: 1 X PER DAY 1 PIECE / BRAND NAME NOT SPECIFIED
     Route: 065
     Dates: start: 20200101, end: 20241013

REACTIONS (1)
  - Hyperkalaemia [Recovered/Resolved]
